FAERS Safety Report 8920178 (Version 2)
Quarter: 2012Q4

REPORT INFORMATION
  Report Type: 
  Country: NL (occurrence: NL)
  Receive Date: 20121122
  Receipt Date: 20121217
  Transmission Date: 20130627
  Serious: Yes (Death, Other)
  Sender: FDA-Public Use
  Company Number: PHHY2012NL105933

PATIENT
  Age: 77 Year
  Sex: Female

DRUGS (11)
  1. ACLASTA [Suspect]
     Indication: OSTEOPOROSIS
     Dosage: 5 mg, yearly
     Route: 042
     Dates: start: 20100917
  2. ACLASTA [Suspect]
     Dosage: 5 mg, yearly
     Route: 042
     Dates: start: 20111118
  3. METOPROLOL [Concomitant]
     Dosage: 50 mg, QD
  4. ISOSORBIDE MONONITRATE [Concomitant]
     Dosage: QD
  5. BERODUAL [Concomitant]
     Dosage: PRN
  6. FORADIL [Concomitant]
     Dosage: 2 DF, QD
  7. METFORMIN [Concomitant]
     Dosage: 1000 mg, TID
  8. ACENOCOUMAROL [Concomitant]
  9. SEMAP [Concomitant]
     Dosage: 20 mg, (According to agreement psychiatrist)
  10. LIPITOR [Concomitant]
     Dosage: 40 mg, QD
  11. PANTOPRAZOLE [Concomitant]
     Dosage: 40 mg, QD

REACTIONS (2)
  - Death [Fatal]
  - Chronic obstructive pulmonary disease [Unknown]
